FAERS Safety Report 9789454 (Version 2)
Quarter: 2014Q1

REPORT INFORMATION
  Report Type: Spontaneous
  Country: IT (occurrence: IT)
  Receive Date: 20131231
  Receipt Date: 20140306
  Transmission Date: 20141002
  Serious: Yes (Hospitalization)
  Sender: FDA-Public Use
  Company Number: PHHY2013IT152309

PATIENT
  Sex: Male

DRUGS (8)
  1. BISOPROLOL [Suspect]
     Indication: CARDIAC FAILURE
     Dosage: 5 MG, QD
     Route: 048
     Dates: start: 20130101, end: 20131210
  2. BISOPROLOL [Interacting]
     Dosage: 1.25 MG, QD
  3. AMIODARONE [Interacting]
     Indication: ATRIAL FIBRILLATION
     Dosage: 200 MG, QD
     Route: 048
     Dates: start: 20131203, end: 20131210
  4. LASIX [Concomitant]
     Indication: CARDIAC FAILURE
     Dosage: 75 MG,
     Route: 048
     Dates: start: 20130101, end: 20131210
  5. UNIPRIL [Concomitant]
     Indication: CARDIAC FAILURE
     Dosage: 10 MG,
     Route: 048
     Dates: start: 20130101, end: 20131210
  6. LUVION [Concomitant]
     Indication: CARDIAC FAILURE
     Dosage: 50 MG,
     Route: 048
     Dates: start: 20130101, end: 20131210
  7. CARDIOASPIRIN [Concomitant]
     Indication: CARDIAC FAILURE
     Dosage: 100 MG, UNK
     Route: 048
     Dates: start: 20130101, end: 20131210
  8. VYTORIN [Concomitant]
     Indication: CARDIAC FAILURE
     Dosage: 1 DF
     Route: 048
     Dates: start: 20130101, end: 20131210

REACTIONS (3)
  - Medication error [Recovering/Resolving]
  - Drug interaction [Recovering/Resolving]
  - Bradycardia [Recovering/Resolving]
